FAERS Safety Report 21688988 (Version 1)
Quarter: 2022Q4

REPORT INFORMATION
  Report Type: Spontaneous
  Country: DK (occurrence: DK)
  Receive Date: 20221206
  Receipt Date: 20221206
  Transmission Date: 20230113
  Serious: Yes (Hospitalization, Other)
  Sender: FDA-Public Use
  Company Number: DK-SA-SAC20221124001647

PATIENT
  Age: 28 Year
  Sex: Male

DRUGS (3)
  1. ETOPOSIDE [Suspect]
     Active Substance: ETOPOSIDE
     Indication: Testis cancer
     Dosage: UNK
     Route: 065
     Dates: start: 2020, end: 2020
  2. CISPLATIN [Suspect]
     Active Substance: CISPLATIN
     Indication: Testis cancer
     Dosage: UNK
     Route: 065
  3. BLEOMYCIN SULFATE [Suspect]
     Active Substance: BLEOMYCIN SULFATE
     Indication: Testis cancer
     Dosage: UNK
     Route: 065
     Dates: start: 2020, end: 2020

REACTIONS (7)
  - Speech disorder [Recovered/Resolved]
  - Fine motor skill dysfunction [Recovered/Resolved]
  - Cerebral thrombosis [Recovered/Resolved]
  - Hemiparesis [Recovered/Resolved]
  - Sensory disturbance [Not Recovered/Not Resolved]
  - Mental fatigue [Not Recovered/Not Resolved]
  - Cognitive disorder [Not Recovered/Not Resolved]

NARRATIVE: CASE EVENT DATE: 20200614
